FAERS Safety Report 9638707 (Version 2)
Quarter: 2013Q4

REPORT INFORMATION
  Report Type: Spontaneous
  Country: US (occurrence: US)
  Receive Date: 20131022
  Receipt Date: 20131122
  Transmission Date: 20140711
  Serious: Yes (Other)
  Sender: FDA-Public Use
  Company Number: CHPA2013US015743

PATIENT
  Age: 94 Year
  Sex: Female

DRUGS (6)
  1. IBUPROFEN [Suspect]
     Dosage: UNK, PRN
  2. PARACETAMOL [Suspect]
     Dosage: 2 DF, PRN
  3. ACETYLSALICYLIC ACID [Suspect]
     Dosage: UNK, QD
     Route: 048
  4. COUMADIN//WARFARIN SODIUM [Suspect]
     Dosage: UNK, UNK
  5. PERCOCET [Suspect]
     Dosage: UNK, UNK
  6. CORTISONE [Suspect]
     Dosage: UNK, UNK

REACTIONS (1)
  - Anxiety [Recovered/Resolved]
